FAERS Safety Report 4295353-1 (Version None)
Quarter: 2004Q1

REPORT INFORMATION
  Report Type: 
  Country: None (occurrence: None)
  Receive Date: 20040216
  Receipt Date: 20030624
  Transmission Date: 20041129
  Serious: No
  Sender: FDA-Public Use
  Company Number: US-GLAXOSMITHKLINE-A0413750A

PATIENT
  Age: 28 Year
  Sex: Male

DRUGS (2)
  1. LAMICTAL [Suspect]
     Route: 048
  2. LEXAPRO [Concomitant]
     Route: 065

REACTIONS (2)
  - PRURITUS [None]
  - RASH [None]
